FAERS Safety Report 25045769 (Version 1)
Quarter: 2025Q1

REPORT INFORMATION
  Report Type: Spontaneous
  Country: US (occurrence: None)
  Receive Date: 20250305
  Receipt Date: 20250305
  Transmission Date: 20250408
  Serious: Yes (Hospitalization)
  Sender: FDA-CTU
  Company Number: None

PATIENT
  Age: 70 Year
  Sex: Female
  Weight: 58.5 kg

DRUGS (14)
  1. NURTEC ODT [Suspect]
     Active Substance: RIMEGEPANT SULFATE
     Route: 060
     Dates: start: 20250225, end: 20250227
  2. LISINOPRIL [Concomitant]
     Active Substance: LISINOPRIL
  3. LINZESS [Concomitant]
     Active Substance: LINACLOTIDE
  4. MOTEGRITY [Concomitant]
     Active Substance: PRUCALOPRIDE SUCCINATE
  5. LAMICTAL XR [Concomitant]
     Active Substance: LAMOTRIGINE
  6. CELEBREX [Concomitant]
     Active Substance: CELECOXIB
  7. AMLODIPINE BESYLATE [Concomitant]
     Active Substance: AMLODIPINE BESYLATE
  8. TOPAMAX [Concomitant]
     Active Substance: TOPIRAMATE
  9. SYNTHROID [Concomitant]
     Active Substance: LEVOTHYROXINE SODIUM
  10. VITAMIN D3 [Concomitant]
     Active Substance: CHOLECALCIFEROL
  11. CALCIUM [Concomitant]
     Active Substance: CALCIUM
  12. Vit K2 [Concomitant]
  13. MAGNESIUM [Concomitant]
     Active Substance: MAGNESIUM
  14. MELATONIN [Concomitant]
     Active Substance: MELATONIN

REACTIONS (3)
  - Anaphylactic shock [None]
  - Anaphylactic reaction [None]
  - Product formulation issue [None]

NARRATIVE: CASE EVENT DATE: 20250225
